FAERS Safety Report 17889840 (Version 1)
Quarter: 2020Q2

REPORT INFORMATION
  Report Type: Spontaneous
  Country: US (occurrence: US)
  Receive Date: 20200612
  Receipt Date: 20200612
  Transmission Date: 20200714
  Serious: Yes (Hospitalization)
  Sender: FDA-Public Use
  Company Number: US-MYLANLABS-2020M1055756

PATIENT
  Age: 22 Year
  Sex: Female

DRUGS (6)
  1. DIVALPROEX SODIUM. [Concomitant]
     Active Substance: DIVALPROEX SODIUM
     Indication: POST-ANOXIC MYOCLONUS
     Dosage: INITIAL DOSAGE NOT STATED
     Route: 065
  2. CLONAZEPAM. [Concomitant]
     Active Substance: CLONAZEPAM
     Dosage: 10 MILLIGRAM, QDINITIAL DOSAGE NOT STATED; HOWEVER, FOLLOWING THE DIAGNOSIS OF SEVERE CHRONIC..
     Route: 065
  3. LEVETIRACETAM. [Suspect]
     Active Substance: LEVETIRACETAM
     Indication: POST-ANOXIC MYOCLONUS
     Dosage: INITIAL DOSAGE NOT STATED
     Route: 065
  4. DIVALPROEX SODIUM. [Concomitant]
     Active Substance: DIVALPROEX SODIUM
     Dosage: 1.5 GRAM, BIDINITIAL DOSAGE NOT STATED; HOWEVER, FOLLOWING THE DIAGNOSIS OF SEVERE...
     Route: 065
  5. CLONAZEPAM. [Concomitant]
     Active Substance: CLONAZEPAM
     Indication: POST-ANOXIC MYOCLONUS
     Dosage: INITIAL DOSAGE NOT STATED
     Route: 065
  6. LEVETIRACETAM. [Suspect]
     Active Substance: LEVETIRACETAM
     Dosage: INITIAL DOSAGE NOT STATED; HOWEVER, FOLLOWING THE DIAGNOSIS OF SEVERE CHRONIC...
     Route: 065

REACTIONS (3)
  - Rebound effect [Recovering/Resolving]
  - Post-anoxic myoclonus [Recovering/Resolving]
  - Condition aggravated [Recovering/Resolving]
